FAERS Safety Report 10081753 (Version 3)
Quarter: 2014Q3

REPORT INFORMATION
  Report Type: Report from Study
  Country: CA (occurrence: CA)
  Receive Date: 20140416
  Receipt Date: 20140903
  Transmission Date: 20150326
  Serious: Yes (Hospitalization)
  Sender: FDA-Public Use
  Company Number: CA-BAYER-2014-053464

PATIENT
  Age: 33 Year
  Sex: Female

DRUGS (6)
  1. VITAMIN C [Concomitant]
     Active Substance: ASCORBIC ACID
  2. LYRICA [Concomitant]
     Active Substance: PREGABALIN
  3. VITAMIN D [Concomitant]
     Active Substance: CHOLECALCIFEROL
  4. BETASERON [Suspect]
     Active Substance: INTERFERON BETA-1B
     Indication: MULTIPLE SCLEROSIS
     Dosage: 0.250 MG, UNK
     Route: 058
     Dates: start: 20140112, end: 20140821
  5. VITAMIN B12 [Concomitant]
     Active Substance: CYANOCOBALAMIN
  6. ELTROXIN [Concomitant]
     Active Substance: LEVOTHYROXINE
     Dosage: 22 ?G, UNK

REACTIONS (20)
  - Injection site pain [None]
  - Nasopharyngitis [Unknown]
  - Anxiety [Recovered/Resolved]
  - Injection site bruising [None]
  - Heart rate increased [Recovered/Resolved]
  - Tremor [Recovered/Resolved]
  - Fatigue [None]
  - Hypertension [Recovered/Resolved]
  - Fall [Recovered/Resolved]
  - Convulsion [Recovered/Resolved]
  - Speech disorder [Recovered/Resolved]
  - Dizziness [Recovering/Resolving]
  - Malaise [Unknown]
  - Hyperhidrosis [Unknown]
  - Tremor [None]
  - Dehydration [Recovered/Resolved]
  - Loss of consciousness [Recovered/Resolved]
  - Aphasia [Recovered/Resolved]
  - Cough [Unknown]
  - Nasal congestion [Unknown]

NARRATIVE: CASE EVENT DATE: 2014
